FAERS Safety Report 19425588 (Version 2)
Quarter: 2022Q4

REPORT INFORMATION
  Report Type: Report from Study
  Country: CA (occurrence: CA)
  Receive Date: 20210616
  Receipt Date: 20221213
  Transmission Date: 20230112
  Serious: Yes (Hospitalization, Other)
  Sender: FDA-Public Use
  Company Number: CA-ABBVIE-21K-028-3946048-00

PATIENT
  Sex: Male

DRUGS (1)
  1. HUMIRA [Suspect]
     Active Substance: ADALIMUMAB
     Indication: Crohn^s disease
     Route: 058
     Dates: start: 20170425, end: 2021

REACTIONS (12)
  - Large intestine perforation [Recovering/Resolving]
  - Accident [Recovering/Resolving]
  - Post procedural complication [Not Recovered/Not Resolved]
  - Intestinal operation [Not Recovered/Not Resolved]
  - Proctalgia [Unknown]
  - Procedural nausea [Unknown]
  - Fistula repair [Unknown]
  - Cholecystectomy [Unknown]
  - Anal abscess [Unknown]
  - Abdominal infection [Unknown]
  - Infected fistula [Unknown]
  - Procedural vomiting [Unknown]

NARRATIVE: CASE EVENT DATE: 20210101
